FAERS Safety Report 25879004 (Version 3)
Quarter: 2025Q4

REPORT INFORMATION
  Report Type: Spontaneous
  Country: US (occurrence: US)
  Receive Date: 20251003
  Receipt Date: 20251022
  Transmission Date: 20260118
  Serious: No
  Sender: PFIZER
  Company Number: US-PFIZER INC-202500195549

PATIENT
  Age: 36 Year
  Sex: Female

DRUGS (2)
  1. CIBINQO [Suspect]
     Active Substance: ABROCITINIB
     Indication: Dermatitis atopic
     Dosage: 100 MG, 1X/DAY
  2. CIBINQO [Suspect]
     Active Substance: ABROCITINIB
     Indication: Pruritus

REACTIONS (2)
  - Sleep disorder due to general medical condition, insomnia type [Unknown]
  - Intentional product misuse [Unknown]
